FAERS Safety Report 25982413 (Version 1)
Quarter: 2025Q4

REPORT INFORMATION
  Report Type: Spontaneous
  Country: GB (occurrence: GB)
  Receive Date: 20251031
  Receipt Date: 20251031
  Transmission Date: 20260118
  Serious: Yes (Other)
  Sender: USV PRIVATE LIMITED
  Company Number: None

PATIENT
  Age: 78 Year

DRUGS (1)
  1. ZOLEDRONIC ACID [Suspect]
     Active Substance: ZOLEDRONIC ACID
     Indication: Osteoporosis

REACTIONS (7)
  - Fatigue [Unknown]
  - Arthralgia [Unknown]
  - Myalgia [Unknown]
  - Eye pain [Unknown]
  - Osteoarthritis [Unknown]
  - Epistaxis [Unknown]
  - Paraesthesia [Unknown]
